FAERS Safety Report 8130503-8 (Version None)
Quarter: 2012Q1

REPORT INFORMATION
  Report Type: 
  Country: None (occurrence: None)
  Receive Date: 20120210
  Receipt Date: 20120202
  Transmission Date: 20120608
  Serious: Yes (Other)
  Sender: FDA-Public Use
  Company Number: GB-ASTRAZENECA-2012SE03563

PATIENT
  Age: 73 Year

DRUGS (6)
  1. RISPERIDONE [Suspect]
     Indication: ANXIETY
     Route: 048
     Dates: end: 20110722
  2. RISPERIDONE [Suspect]
     Indication: BIPOLAR DISORDER
     Route: 048
     Dates: end: 20110722
  3. RAMIPRIL [Concomitant]
     Indication: BLOOD PRESSURE ABNORMAL
     Route: 048
  4. FLUOXETINE [Concomitant]
     Indication: BIPOLAR DISORDER
     Route: 048
  5. SEROQUEL XR [Suspect]
     Indication: BIPOLAR DISORDER
     Route: 048
     Dates: start: 20110722, end: 20111115
  6. LYRICA [Concomitant]
     Indication: ANXIETY
     Route: 048
     Dates: start: 20110629

REACTIONS (4)
  - TONGUE PARALYSIS [None]
  - TARDIVE DYSKINESIA [None]
  - DRUG WITHDRAWAL SYNDROME [None]
  - TONGUE DISORDER [None]
